FAERS Safety Report 8616148 (Version 2)
Quarter: 2012Q4

REPORT INFORMATION
  Report Type: Report from Study
  Country: DE (occurrence: DE)
  Receive Date: 20120614
  Receipt Date: 20121214
  Transmission Date: 20130627
  Serious: Yes (Hospitalization)
  Sender: FDA-Public Use
  Company Number: DE-ROCHE-1071359

PATIENT
  Age: 54 Year
  Sex: Female
  Weight: 88.5 kg

DRUGS (7)
  1. VEMURAFENIB [Suspect]
     Indication: METASTATIC MALIGNANT MELANOMA
     Route: 065
     Dates: start: 20120131, end: 20120326
  2. VEMURAFENIB [Suspect]
     Route: 065
     Dates: start: 20120404
  3. VEMURAFENIB [Suspect]
     Route: 048
     Dates: start: 20120420
  4. VEMURAFENIB [Suspect]
     Route: 048
     Dates: start: 20120505, end: 20120521
  5. TOREM [Concomitant]
     Route: 065
     Dates: start: 20120327
  6. TOREM [Concomitant]
     Route: 065
     Dates: start: 20120522
  7. AERIUS [Concomitant]
     Route: 065
     Dates: start: 20120228

REACTIONS (2)
  - Headache [Recovered/Resolved]
  - Hydrocephalus [Recovered/Resolved]
